FAERS Safety Report 11814437 (Version 1)
Quarter: 2015Q4

REPORT INFORMATION
  Report Type: Spontaneous
  Country: DE (occurrence: DE)
  Receive Date: 20151209
  Receipt Date: 20151209
  Transmission Date: 20160305
  Serious: Yes (Other)
  Sender: FDA-Public Use
  Company Number: DE-PFIZER INC-2015429209

PATIENT
  Age: 36 Year
  Sex: Female
  Weight: 74 kg

DRUGS (5)
  1. FEMIBION SCHWANGERSCHAFT [Concomitant]
     Indication: PROPHYLAXIS OF NEURAL TUBE DEFECT
     Dosage: 0.8 MG, DAILY
     Route: 048
     Dates: start: 20140805, end: 20150512
  2. SERTRALINE HCL [Suspect]
     Active Substance: SERTRALINE HYDROCHLORIDE
     Indication: DEPRESSION
     Dosage: 50 MG, 2X/DAY
     Route: 048
     Dates: start: 20140805, end: 20150512
  3. XANAFLU [Concomitant]
     Active Substance: INFLUENZA VIRUS VACCINE
     Indication: IMMUNISATION
     Dosage: UNK
     Route: 030
     Dates: start: 20141113, end: 20141113
  4. MONURIL [Concomitant]
     Active Substance: FOSFOMYCIN SODIUM
     Indication: URINARY TRACT INFECTION
     Dosage: 3000 MG, 1X/DAY, GIVEN ONCE BETWEEN WEEK 10 AND 11
     Route: 048
  5. CLOTRIMAZOLE. [Concomitant]
     Active Substance: CLOTRIMAZOLE
     Indication: VULVOVAGINAL MYCOTIC INFECTION
     Dosage: SEVERAL TIMES BETWEEN WEEK 11 AND 20
     Route: 067

REACTIONS (1)
  - Premature rupture of membranes [Unknown]
